FAERS Safety Report 16053473 (Version 1)
Quarter: 2019Q1

REPORT INFORMATION
  Report Type: Spontaneous
  Country: US (occurrence: US)
  Receive Date: 20190308
  Receipt Date: 20190308
  Transmission Date: 20190418
  Serious: No
  Sender: FDA-Public Use
  Company Number: US-TEVA-2019-US-1013010

PATIENT
  Sex: Male

DRUGS (5)
  1. FUROSEMIDE. [Interacting]
     Active Substance: FUROSEMIDE
     Route: 065
  2. NEPROXEN (NAPROXEN) [Interacting]
     Active Substance: NAPROXEN
     Route: 065
  3. NIFEDIPINE ER 30 MG INGENUS [Suspect]
     Active Substance: NIFEDIPINE
     Route: 065
  4. METOPROLOL 25 MG TABLET [Suspect]
     Active Substance: METOPROLOL
     Indication: HYPERTENSION
     Route: 065
  5. VITAMIN D [Interacting]
     Active Substance: CHOLECALCIFEROL
     Route: 065

REACTIONS (2)
  - Drug interaction [Unknown]
  - Oedema [Recovered/Resolved]
